FAERS Safety Report 8180150-7 (Version None)
Quarter: 2012Q1

REPORT INFORMATION
  Report Type: 
  Country: None (occurrence: None)
  Receive Date: 20120215
  Receipt Date: 20120207
  Transmission Date: 20120608
  Serious: Yes (Other)
  Sender: FDA-Public Use
  Company Number: 2011030632

PATIENT
  Age: 56 Year
  Sex: Female

DRUGS (10)
  1. PRIVIGEN [Suspect]
  2. PRIVIGEN [Suspect]
  3. PRIVIGEN [Suspect]
     Indication: SECONDARY IMMUNODEFICIENCY
     Dosage: SEE IMAGE
     Route: 042
     Dates: start: 20110929
  4. PRIVIGEN [Suspect]
     Indication: SECONDARY IMMUNODEFICIENCY
     Dosage: SEE IMAGE
     Route: 042
     Dates: start: 20111114
  5. PRIVIGEN [Suspect]
     Indication: SECONDARY IMMUNODEFICIENCY
     Dosage: SEE IMAGE
     Route: 042
     Dates: start: 20110715
  6. PRIVIGEN [Suspect]
     Indication: SECONDARY IMMUNODEFICIENCY
     Dosage: SEE IMAGE
     Route: 042
     Dates: start: 20110929
  7. PRIVIGEN [Suspect]
     Indication: SECONDARY IMMUNODEFICIENCY
     Dosage: SEE IMAGE
     Route: 042
     Dates: start: 20110909
  8. PRIVIGEN [Suspect]
     Indication: SECONDARY IMMUNODEFICIENCY
     Dosage: SEE IMAGE
     Route: 042
     Dates: start: 20110804
  9. PRIVIGEN [Suspect]
     Indication: SECONDARY IMMUNODEFICIENCY
     Dosage: SEE IMAGE
     Route: 042
     Dates: start: 20111020
  10. PRIVIGEN [Suspect]

REACTIONS (4)
  - HEPATITIS B DNA ASSAY POSITIVE [None]
  - HEPATITIS B SURFACE ANTIGEN POSITIVE [None]
  - GAMMA-GLUTAMYLTRANSFERASE INCREASED [None]
  - TRANSMISSION OF AN INFECTIOUS AGENT VIA A MEDICINAL PRODUCT [None]
